FAERS Safety Report 10031885 (Version 3)
Quarter: 2020Q3

REPORT INFORMATION
  Report Type: Spontaneous
  Country: US (occurrence: US)
  Receive Date: 20140324
  Receipt Date: 20200921
  Transmission Date: 20201102
  Serious: Yes (Other)
  Sender: FDA-Public Use
  Company Number: US-PFIZER INC-2014065979

PATIENT
  Age: 60 Year
  Sex: Female

DRUGS (5)
  1. LITIAM [Concomitant]
     Dosage: UNK, 1X/DAY (ONE TIME DAILY)
     Dates: start: 2001
  2. CALCIUM [Concomitant]
     Active Substance: CALCIUM
     Dosage: UNK, 4X/DAY (4 TIMES DAILY)
     Dates: start: 2001
  3. LIPITOR [Suspect]
     Active Substance: ATORVASTATIN CALCIUM
     Dosage: 40 MG, 1X/DAY
     Route: 048
     Dates: start: 2000, end: 2013
  4. LIPITOR [Suspect]
     Active Substance: ATORVASTATIN CALCIUM
     Indication: BLOOD CHOLESTEROL INCREASED
     Dosage: UNK, 1X/DAY
     Route: 048
     Dates: start: 1994, end: 2013
  5. ASPIRIN. [Concomitant]
     Active Substance: ASPIRIN
     Dosage: UNK, 1X/DAY (1 TIME DAILY)
     Dates: start: 2001

REACTIONS (1)
  - Type 2 diabetes mellitus [Not Recovered/Not Resolved]

NARRATIVE: CASE EVENT DATE: 2006
